FAERS Safety Report 5880310-1 (Version None)
Quarter: 2008Q3

REPORT INFORMATION
  Report Type: 
  Country: None (occurrence: None)
  Receive Date: 20080912
  Receipt Date: 20080910
  Transmission Date: 20090109
  Serious: Yes (Other)
  Sender: FDA-Public Use
  Company Number: PHEH2008US07914

PATIENT
  Sex: Female

DRUGS (9)
  1. TEKTURNA [Suspect]
     Indication: HYPERTENSION
     Dosage: UNK, UNK
     Dates: start: 20080524, end: 20080711
  2. ASPIRIN [Concomitant]
     Indication: CORONARY ARTERY DISEASE
     Dosage: 325 MG, QD
  3. DILANTIN                                /AUS/ [Concomitant]
     Indication: CONVULSION
     Dosage: 100 MG, QD
  4. TICLID [Concomitant]
     Indication: CORONARY ARTERY DISEASE
     Dosage: 500 MG, QD
     Dates: start: 20070101
  5. HYDROCHLOROTHIAZIDE [Concomitant]
     Indication: HYPERTENSION
     Dosage: 25 MG, QD
  6. LIPITOR [Concomitant]
     Indication: HYPERCHOLESTEROLAEMIA
     Dosage: 80 MG, QD
  7. DILTIAZEM [Concomitant]
     Indication: HYPERTENSION
     Dosage: 360 MG, QD
     Dates: start: 20060101
  8. LISINOPRIL [Concomitant]
     Indication: HYPERTENSION
     Dosage: 80 MG, QD
     Dates: start: 20080320
  9. CALCIUM [Concomitant]
     Dosage: 600 MG, QD

REACTIONS (7)
  - DERMATITIS [None]
  - ERYTHEMA [None]
  - HYPERKERATOSIS [None]
  - HYPERSENSITIVITY [None]
  - PRURITUS [None]
  - RASH MACULO-PAPULAR [None]
  - SKIN LESION [None]
